FAERS Safety Report 7271592-2 (Version None)
Quarter: 2011Q1

REPORT INFORMATION
  Report Type: 
  Country: None (occurrence: None)
  Receive Date: 20110121
  Receipt Date: 20110121
  Transmission Date: 20110831
  Serious: Yes (Life-Threatening)
  Sender: FDA-Public Use
  Company Number: None

PATIENT
  Age: 57 Year
  Sex: Female
  Weight: 63.5036 kg

DRUGS (1)
  1. SPIRIVA [Suspect]
     Indication: CHRONIC OBSTRUCTIVE PULMONARY DISEASE
     Dosage: 1 CAPSULE PER DAY 24 HRS INHAL
     Route: 055
     Dates: start: 20100213, end: 20110122

REACTIONS (10)
  - ABDOMINAL DISTENSION [None]
  - NAUSEA [None]
  - DRY EYE [None]
  - DYSURIA [None]
  - RENAL DISORDER [None]
  - ABDOMINAL PAIN UPPER [None]
  - CONSTIPATION [None]
  - PRURITUS GENITAL [None]
  - BLOOD PRESSURE INCREASED [None]
  - RENAL FAILURE [None]
